FAERS Safety Report 9415313 (Version 2)
Quarter: 2013Q3

REPORT INFORMATION
  Report Type: Report from Study
  Country: CH (occurrence: CH)
  Receive Date: 20130723
  Receipt Date: 20130807
  Transmission Date: 20140515
  Serious: Yes (Hospitalization)
  Sender: FDA-Public Use
  Company Number: CH-BRISTOL-MYERS SQUIBB COMPANY-19106285

PATIENT
  Age: 64 Year
  Sex: Male

DRUGS (9)
  1. CISPLATIN [Suspect]
     Indication: NON-SMALL CELL LUNG CANCER
     Dosage: 1DF:135/100MG.?LAST DOSE ON 05-APR-2013.
     Route: 042
     Dates: start: 20130215
  2. CARBOPLATIN [Suspect]
     Indication: NON-SMALL CELL LUNG CANCER
     Dosage: LAST DOSE ON 26-APR-2013.
     Route: 042
     Dates: start: 20130426
  3. PEMETREXED DISODIUM [Suspect]
     Indication: NON-SMALL CELL LUNG CANCER
     Dosage: 1DF:900MG/675MG,VIAL.?LAST DOSE ON 18-JUN-2013.
     Route: 042
     Dates: start: 20130215
  4. PANTOZOL [Concomitant]
     Dates: start: 20130213
  5. FOLVITE [Concomitant]
     Dates: start: 20130206
  6. LAXOBERON [Concomitant]
     Dates: start: 20130403
  7. MORPHINE SULFATE [Concomitant]
     Dates: start: 20130311
  8. VITARUBIN [Concomitant]
     Dates: start: 20130206
  9. DEXAMETHASONE [Concomitant]

REACTIONS (1)
  - Asthenia [Recovered/Resolved]
